FAERS Safety Report 5862093-4 (Version None)
Quarter: 2008Q3

REPORT INFORMATION
  Report Type: 
  Country: None (occurrence: None)
  Receive Date: 20080827
  Receipt Date: 20080827
  Transmission Date: 20090109
  Serious: No
  Sender: FDA-Public Use
  Company Number: None

PATIENT
  Age: 43 Year
  Sex: Female

DRUGS (4)
  1. RISPERIDONE [Suspect]
     Indication: BIPOLAR DISORDER
     Dosage: 1MG BID PO
     Route: 048
  2. KLONOPIN [Concomitant]
  3. BENADRYL [Concomitant]
  4. ATIVAN [Concomitant]

REACTIONS (2)
  - LETHARGY [None]
  - URTICARIA [None]
